FAERS Safety Report 6403111-4 (Version None)
Quarter: 2009Q4

REPORT INFORMATION
  Report Type: 
  Country: None (occurrence: None)
  Receive Date: 20091016
  Receipt Date: 20091006
  Transmission Date: 20100525
  Serious: Yes (Hospitalization, Disabling)
  Sender: FDA-Public Use
  Company Number: IT-JNJFOC-20091001975

PATIENT
  Age: 41 Year
  Sex: Male

DRUGS (3)
  1. REMICADE [Suspect]
     Indication: PSORIATIC ARTHROPATHY
     Route: 042
     Dates: start: 20080205, end: 20090511
  2. METHOTREXATE [Concomitant]
     Route: 050
  3. CALCIUM LEVOFOLINATE [Concomitant]
     Route: 048

REACTIONS (4)
  - ASTHENIA [None]
  - DYSAESTHESIA [None]
  - MUSCLE ATROPHY [None]
  - POLYNEUROPATHY [None]
